FAERS Safety Report 14049756 (Version 3)
Quarter: 2018Q4

REPORT INFORMATION
  Report Type: Spontaneous
  Country: AR (occurrence: AR)
  Receive Date: 20171005
  Receipt Date: 20181226
  Transmission Date: 20190204
  Serious: Yes (Other)
  Sender: FDA-Public Use
  Company Number: AR-PFIZER INC-2017423594

PATIENT
  Age: 11 Year
  Sex: Female

DRUGS (1)
  1. GENOTROPIN [Suspect]
     Active Substance: SOMATROPIN
     Indication: HYPOPITUITARISM
     Dosage: 1 TO 1.4 MG, 6 TIMES PER WEEK
     Dates: start: 20051231

REACTIONS (10)
  - Fatigue [Unknown]
  - Joint dislocation [Unknown]
  - Drug ineffective [Unknown]
  - Body temperature increased [Unknown]
  - Injection site pain [Unknown]
  - Disease recurrence [Recovering/Resolving]
  - Blister [Unknown]
  - Malaise [Unknown]
  - Agitation [Unknown]
  - Dyspnoea [Recovering/Resolving]

NARRATIVE: CASE EVENT DATE: 2014
